FAERS Safety Report 20329189 (Version 4)
Quarter: 2022Q1

REPORT INFORMATION
  Report Type: Spontaneous
  Country: ES (occurrence: ES)
  Receive Date: 20220112
  Receipt Date: 20220316
  Transmission Date: 20220423
  Serious: Yes (Hospitalization, Other)
  Sender: FDA-Public Use
  Company Number: ES-002147023-NVSC2022ES000978

PATIENT
  Age: 53 Year
  Sex: Female

DRUGS (15)
  1. TAMOXIFEN [Suspect]
     Active Substance: TAMOXIFEN
     Indication: Product used for unknown indication
     Dosage: UNK
     Route: 065
     Dates: start: 20200201, end: 20211031
  2. KISQALI [Suspect]
     Active Substance: RIBOCICLIB
     Indication: Breast cancer
     Dosage: 400 MILLIGRAM, 400 MG
     Route: 065
     Dates: start: 20211202
  3. KISQALI [Suspect]
     Active Substance: RIBOCICLIB
     Indication: Hormone receptor negative HER2 positive breast cancer
     Dosage: 200 MILLIGRAM, QD, 200 MG, QD
     Route: 065
  4. KISQALI [Suspect]
     Active Substance: RIBOCICLIB
     Dosage: 600 MILLIGRAM, QD, 600 MG,QD
     Route: 065
     Dates: start: 20211104
  5. CARBAMAZEPINE [Concomitant]
     Active Substance: CARBAMAZEPINE
     Indication: Mastectomy
     Dosage: UNK(BECAUSE OF THE DIFFICULT MASTECTOMY AND RECONSTRUCTION)
     Route: 065
  6. IBUPROFEN [Concomitant]
     Active Substance: IBUPROFEN
     Indication: Antiinflammatory therapy
     Dosage: 1200 MILLIGRAM, QD, 600 MG, BID (FOLLOWING A DIFFICULT MASTECTOMY)
     Route: 065
  7. IBUPROFEN [Concomitant]
     Active Substance: IBUPROFEN
     Indication: Analgesic therapy
  8. VITAMIN D [Concomitant]
     Active Substance: VITAMIN D NOS
     Indication: Hypovitaminosis
     Dosage: UNK
     Route: 065
  9. ESCITALOPRAM OXALATE [Concomitant]
     Active Substance: ESCITALOPRAM OXALATE
     Indication: Depression
     Dosage: 30 MILLIGRAM, 30 MG  (FOR 2 YEARS)
     Route: 065
  10. Deprax [Concomitant]
     Indication: Product used for unknown indication
     Dosage: 100 MILLIGRAM, 100 MG (BEFORE SLEEP)
     Route: 065
     Dates: start: 201909
  11. CONCERTA [Concomitant]
     Active Substance: METHYLPHENIDATE HYDROCHLORIDE
     Indication: Attention deficit hyperactivity disorder
     Dosage: UNK
     Route: 065
  12. CONCERTA [Concomitant]
     Active Substance: METHYLPHENIDATE HYDROCHLORIDE
     Dosage: 36 MILLIGRAM, QD (FOR 2 YEARS)
     Route: 065
  13. LORAZEPAM [Concomitant]
     Active Substance: LORAZEPAM
     Indication: Product used for unknown indication
     Dosage: 1 MILLIGRAM, 1 MG (BEFORE SLEEP)
     Route: 065
     Dates: start: 201909
  14. GABAPENTIN [Concomitant]
     Active Substance: GABAPENTIN
     Indication: Neuralgia
     Dosage: 600 MILLIGRAM, QD (300 MG, BID)
     Route: 065
     Dates: start: 20211101
  15. LYRICA [Concomitant]
     Active Substance: PREGABALIN
     Indication: Product used for unknown indication
     Dosage: UNK(BECAUSE OF THE DIFFICULT MASTECTOMY AND RECONSTRUCTION))

REACTIONS (8)
  - Blood test abnormal [Recovering/Resolving]
  - Circulatory collapse [Unknown]
  - Hyperacusis [Unknown]
  - Blood pressure decreased [Recovered/Resolved]
  - Ocular hyperaemia [Unknown]
  - Hypertension [Unknown]
  - Discomfort [Recovered/Resolved]
  - Blood pressure fluctuation [Recovered/Resolved]

NARRATIVE: CASE EVENT DATE: 20211227
